FAERS Safety Report 5656602-8 (Version None)
Quarter: 2008Q1

REPORT INFORMATION
  Report Type: 
  Country: None (occurrence: None)
  Receive Date: 20080306
  Receipt Date: 20080306
  Transmission Date: 20080703
  Serious: Yes (Life-Threatening, Hospitalization, Disabling, Other)
  Sender: FDA-Public Use
  Company Number: None

PATIENT
  Age: 18 Year
  Sex: Female
  Weight: 83.4619 kg

DRUGS (1)
  1. BYETTA [Suspect]
     Indication: TYPE 2 DIABETES MELLITUS
     Dosage: 2 TIMES A DAY  2 TIMES A DAY  IM
     Route: 030

REACTIONS (12)
  - ACUTE RESPIRATORY DISTRESS SYNDROME [None]
  - COLLAPSE OF LUNG [None]
  - GASTRIC DISORDER [None]
  - MULTI-ORGAN FAILURE [None]
  - PANCREATIC NECROSIS [None]
  - PANCREATITIS [None]
  - PSEUDOCYST [None]
  - PSYCHOMOTOR SKILLS IMPAIRED [None]
  - RASH [None]
  - RENAL FAILURE [None]
  - RESPIRATORY FAILURE [None]
  - WEANING FAILURE [None]
